FAERS Safety Report 9818282 (Version 2)
Quarter: 2014Q3

REPORT INFORMATION
  Report Type: Spontaneous
  Country: US (occurrence: US)
  Receive Date: 20140115
  Receipt Date: 20140701
  Transmission Date: 20150326
  Serious: Yes (Death, Life-Threatening, Hospitalization, Disabling, Other)
  Sender: FDA-Public Use
  Company Number: US-009507513-1401USA005643

PATIENT
  Sex: Male
  Weight: 82.86 kg

DRUGS (4)
  1. OMEPRAZOLE. [Concomitant]
     Active Substance: OMEPRAZOLE
     Dosage: 40 MG, QD
  2. ALLOPURINOL. [Concomitant]
     Active Substance: ALLOPURINOL
     Dosage: 100 MG, QD
  3. JANUVIA [Suspect]
     Active Substance: SITAGLIPTIN PHOSPHATE
     Indication: TYPE 2 DIABETES MELLITUS
     Dosage: 50 MG, QD
     Route: 048
     Dates: start: 20100126, end: 20110525
  4. SYNTHROID [Concomitant]
     Active Substance: LEVOTHYROXINE SODIUM
     Indication: HYPOTHYROIDISM
     Dosage: 50 MICROGRAM, QD

REACTIONS (27)
  - Omentectomy [Unknown]
  - Basal cell carcinoma [Unknown]
  - Cough [Not Recovered/Not Resolved]
  - Skin neoplasm excision [Unknown]
  - Gastric polypectomy [Unknown]
  - Biopsy lung [Unknown]
  - Dyslipidaemia [Unknown]
  - Aortic arteriosclerosis [Unknown]
  - Arthralgia [Unknown]
  - Adenocarcinoma pancreas [Fatal]
  - Bile duct stent insertion [Unknown]
  - Hepatic steatosis [Unknown]
  - Pollakiuria [Unknown]
  - Hiatus hernia [Unknown]
  - Musculoskeletal discomfort [Unknown]
  - Gastric polyps [Unknown]
  - Pancreaticoduodenectomy [Unknown]
  - Metastases to lung [Unknown]
  - Gastrooesophageal reflux disease [Unknown]
  - Lymphadenopathy [Unknown]
  - Rash [Unknown]
  - Prostatic calcification [Unknown]
  - Intestinal obstruction [Unknown]
  - Abdominal adhesions [Unknown]
  - Pneumonia [Unknown]
  - Macrocytosis [Unknown]
  - Pneumothorax [Unknown]

NARRATIVE: CASE EVENT DATE: 20100805
